FAERS Safety Report 20651159 (Version 1)
Quarter: 2022Q1

REPORT INFORMATION
  Report Type: Report from Study
  Country: BR (occurrence: BR)
  Receive Date: 20220329
  Receipt Date: 20220329
  Transmission Date: 20220423
  Serious: Yes (Death, Other)
  Sender: FDA-Public Use
  Company Number: BR-JNJFOC-20220351903

PATIENT
  Sex: Female

DRUGS (1)
  1. SIMPONI [Suspect]
     Active Substance: GOLIMUMAB
     Indication: Rheumatoid arthritis
     Dosage: STARTED ON 28-OCT-2020
     Route: 058
     Dates: start: 2020

REACTIONS (5)
  - Death [Fatal]
  - Postoperative wound infection [Unknown]
  - Diabetes mellitus inadequate control [Unknown]
  - Surgery [Unknown]
  - Urinary tract infection [Unknown]
